FAERS Safety Report 19759900 (Version 1)
Quarter: 2021Q3

REPORT INFORMATION
  Report Type: Spontaneous
  Country: US (occurrence: US)
  Receive Date: 20210830
  Receipt Date: 20210830
  Transmission Date: 20211014
  Serious: Yes (Life-Threatening, Hospitalization, Other)
  Sender: FDA-Public Use
  Company Number: US-HIKMA PHARMACEUTICALS USA INC.-US-H14001-21-03748

PATIENT
  Age: 17 Year
  Sex: Female
  Weight: 88.6 kg

DRUGS (8)
  1. MERCAPTOPURINE. [Suspect]
     Active Substance: MERCAPTOPURINE
     Indication: ACUTE LYMPHOCYTIC LEUKAEMIA
     Dosage: MONDAY ? FRIDAY
     Route: 048
     Dates: start: 20210618
  2. PEGASPARGASE [Suspect]
     Active Substance: PEGASPARGASE
     Indication: ACUTE LYMPHOCYTIC LEUKAEMIA
     Dosage: 3750 UNITS, SINGLE
     Route: 042
     Dates: start: 20210702, end: 20210702
  3. INCB018424 [Suspect]
     Active Substance: RUXOLITINIB
     Indication: ACUTE LYMPHOCYTIC LEUKAEMIA
     Route: 048
     Dates: start: 20210618
  4. METHOTREXATE. [Suspect]
     Active Substance: METHOTREXATE
     Indication: ACUTE LYMPHOCYTIC LEUKAEMIA
     Dosage: SINGLE
     Route: 037
     Dates: start: 20210618
  5. CYTARABINE. [Suspect]
     Active Substance: CYTARABINE
     Indication: ACUTE LYMPHOCYTIC LEUKAEMIA
     Route: 058
     Dates: start: 20210618
  6. MERCAPTOPURINE. [Suspect]
     Active Substance: MERCAPTOPURINE
     Dosage: SATURDAY AND SUNDAY
     Route: 048
     Dates: start: 20210618
  7. CYCLOPHOSPHAMIDE. [Suspect]
     Active Substance: CYCLOPHOSPHAMIDE
     Indication: ACUTE LYMPHOCYTIC LEUKAEMIA
     Dosage: SINGLE
     Route: 042
     Dates: start: 20210618
  8. VINCRISTINE [Suspect]
     Active Substance: VINCRISTINE
     Indication: ACUTE LYMPHOCYTIC LEUKAEMIA
     Dosage: SINGLE
     Route: 042
     Dates: start: 20210702

REACTIONS (11)
  - Chest pain [Unknown]
  - Anaphylactic reaction [Recovering/Resolving]
  - Heart rate abnormal [Recovered/Resolved]
  - Pyrexia [Recovering/Resolving]
  - White blood cell count decreased [Unknown]
  - Headache [Unknown]
  - Oxygen saturation decreased [Recovered/Resolved]
  - Neutropenia [Unknown]
  - Urticaria [Recovered/Resolved]
  - Swelling face [Unknown]
  - Neutrophil count decreased [Unknown]

NARRATIVE: CASE EVENT DATE: 20210702
